FAERS Safety Report 6603758-6 (Version None)
Quarter: 2010Q1

REPORT INFORMATION
  Report Type: 
  Country: None (occurrence: None)
  Receive Date: 20100226
  Receipt Date: 20090311
  Transmission Date: 20100710
  Serious: Yes (Life-Threatening, Hospitalization, Disabling, Other)
  Sender: FDA-Public Use
  Company Number: A0764328A

PATIENT
  Age: 15 Year
  Sex: Female

DRUGS (1)
  1. LAMICTAL CD [Suspect]
     Indication: EPILEPSY
     Dosage: 50MG PER DAY
     Route: 048
     Dates: start: 20081022, end: 20081221

REACTIONS (4)
  - APLASTIC ANAEMIA [None]
  - DRUG INEFFECTIVE [None]
  - PANCYTOPENIA [None]
  - THROMBOCYTOPENIA [None]
